FAERS Safety Report 10174250 (Version 1)
Quarter: 2014Q2

REPORT INFORMATION
  Report Type: Spontaneous
  Country: US (occurrence: US)
  Receive Date: 20140515
  Receipt Date: 20140515
  Transmission Date: 20141212
  Serious: No
  Sender: FDA-Public Use
  Company Number: US-009507513-1404USA004157

PATIENT
  Sex: Female
  Weight: 101.13 kg

DRUGS (11)
  1. OXYTROL FOR WOMEN [Suspect]
     Indication: URINARY INCONTINENCE
     Dosage: UNK, UNKNOWN
     Route: 062
  2. LISINOPRIL [Concomitant]
     Indication: HYPERTENSION
     Dosage: UNK, UNKNOWN
  3. CYMBALTA [Concomitant]
     Indication: ANXIETY
     Dosage: UNK, UNKNOWN
  4. CYMBALTA [Concomitant]
     Indication: DEPRESSION
  5. XANAX [Concomitant]
     Indication: ANXIETY
     Dosage: UNK, UNKNOWN
  6. XANAX [Concomitant]
     Indication: DEPRESSION
  7. PRILOSEC [Concomitant]
     Indication: GASTROOESOPHAGEAL REFLUX DISEASE
     Dosage: UNK, UNKNOWN
  8. IBANDRONATE SODIUM [Concomitant]
     Indication: PRODUCT USED FOR UNKNOWN INDICATION
     Dosage: UNK, UNKNOWN
  9. MORPHINE SULFATE [Concomitant]
     Indication: BACK PAIN
     Dosage: UNK, UNKNOWN
  10. HYDROCODONE [Concomitant]
     Indication: PRODUCT USED FOR UNKNOWN INDICATION
     Dosage: UNK, UNKNOWN
  11. GABAPENTIN [Concomitant]
     Indication: PRODUCT USED FOR UNKNOWN INDICATION
     Dosage: UNK, UNKNOWN

REACTIONS (3)
  - Peripheral swelling [Recovering/Resolving]
  - Joint swelling [Recovering/Resolving]
  - Dry mouth [Unknown]
